FAERS Safety Report 14834743 (Version 1)
Quarter: 2018Q2

REPORT INFORMATION
  Report Type: Spontaneous
  Country: US (occurrence: US)
  Receive Date: 20180501
  Receipt Date: 20180501
  Transmission Date: 20180711
  Serious: No
  Sender: FDA-Public Use
  Company Number: US-TAKEDA-2018TUS012095

PATIENT
  Sex: Female

DRUGS (1)
  1. DEXILANT [Suspect]
     Active Substance: DEXLANSOPRAZOLE
     Indication: GASTROOESOPHAGEAL REFLUX DISEASE
     Dosage: 60 MG, BID
     Route: 048
     Dates: start: 2014, end: 20180419

REACTIONS (4)
  - Incorrect drug administration duration [Unknown]
  - Lip pain [Not Recovered/Not Resolved]
  - Skin exfoliation [Not Recovered/Not Resolved]
  - Overdose [Unknown]

NARRATIVE: CASE EVENT DATE: 201803
